FAERS Safety Report 10051644 (Version 1)
Quarter: 2014Q1

REPORT INFORMATION
  Report Type: Spontaneous
  Country: US (occurrence: None)
  Receive Date: 20140331
  Receipt Date: 20140331
  Transmission Date: 20141002
  Serious: Yes (Other)
  Sender: FDA-Public Use
  Company Number: LIT-14-0016-W

PATIENT
  Age: 51 Year
  Sex: Male

DRUGS (4)
  1. LISINOPRIL [Suspect]
     Route: 048
  2. HYDROCODONE BITARTRATE [Concomitant]
  3. APAP [Concomitant]
  4. ALPRAZOLAM [Concomitant]

REACTIONS (7)
  - Hyperkalaemia [None]
  - Renal failure acute [None]
  - Rhabdomyolysis [None]
  - Overdose [None]
  - Intentional overdose [None]
  - Multi-organ failure [None]
  - Metabolic acidosis [None]
